FAERS Safety Report 17479369 (Version 1)
Quarter: 2020Q1

REPORT INFORMATION
  Report Type: Spontaneous
  Country: PL (occurrence: PL)
  Receive Date: 20200228
  Receipt Date: 20200228
  Transmission Date: 20200409
  Serious: Yes (Other)
  Sender: FDA-Public Use
  Company Number: PL-ACCORD-173936

PATIENT
  Age: 61 Year
  Sex: Male

DRUGS (1)
  1. IRINOTECAN [Suspect]
     Active Substance: IRINOTECAN
     Indication: CHOLANGIOCARCINOMA

REACTIONS (4)
  - Off label use [Unknown]
  - Left ventricular dysfunction [Recovering/Resolving]
  - Cardiotoxicity [Recovering/Resolving]
  - Pain [Recovering/Resolving]
